FAERS Safety Report 18416698 (Version 3)
Quarter: 2020Q4

REPORT INFORMATION
  Report Type: Spontaneous
  Country: US (occurrence: US)
  Receive Date: 20201022
  Receipt Date: 20201209
  Transmission Date: 20210114
  Serious: No
  Sender: FDA-Public Use
  Company Number: US-PFIZER INC-2020407745

PATIENT
  Age: 59 Year
  Sex: Female
  Weight: 72.56 kg

DRUGS (1)
  1. SUTENT [Suspect]
     Active Substance: SUNITINIB MALATE
     Indication: RENAL CANCER
     Dosage: 50 MG, CYCLIC (DAILY 28 DAYS ON, 14 OFF)
     Route: 048
     Dates: start: 20201015

REACTIONS (6)
  - Feeling abnormal [Unknown]
  - Anxiety [Unknown]
  - Nausea [Unknown]
  - Vomiting [Unknown]
  - Stomatitis [Unknown]
  - Depression [Unknown]

NARRATIVE: CASE EVENT DATE: 202010
